FAERS Safety Report 11741135 (Version 1)
Quarter: 2015Q4

REPORT INFORMATION
  Report Type: Report from Study
  Country: NL (occurrence: NL)
  Receive Date: 20151116
  Receipt Date: 20151116
  Transmission Date: 20160304
  Serious: Yes (Other)
  Sender: FDA-Public Use
  Company Number: NL-AMGEN-NLDSL2015119528

PATIENT
  Age: 85 Year
  Sex: Female

DRUGS (1)
  1. ARANESP [Suspect]
     Active Substance: DARBEPOETIN ALFA
     Indication: ANAEMIA
     Dosage: 200 MCG/ML 0.4 ML, Q2WK
     Route: 058

REACTIONS (2)
  - Living in residential institution [Unknown]
  - Adverse reaction [Unknown]

NARRATIVE: CASE EVENT DATE: 20151109
